FAERS Safety Report 5307208-1 (Version None)
Quarter: 2007Q2

REPORT INFORMATION
  Report Type: 
  Country: None (occurrence: None)
  Receive Date: 20070425
  Receipt Date: 20070416
  Transmission Date: 20071010
  Serious: Yes (Other)
  Sender: FDA-Public Use
  Company Number: PHBS2007SE06703

PATIENT
  Sex: Female

DRUGS (1)
  1. MALLOROL [Suspect]

REACTIONS (1)
  - PERIODONTITIS [None]
